FAERS Safety Report 15413067 (Version 1)
Quarter: 2018Q3

REPORT INFORMATION
  Report Type: Spontaneous
  Country: CH (occurrence: CH)
  Receive Date: 20180921
  Receipt Date: 20180921
  Transmission Date: 20181010
  Serious: Yes (Hospitalization)
  Sender: FDA-Public Use
  Company Number: CH-TEVA-2018-CH-956914

PATIENT
  Age: 22 Year
  Sex: Male

DRUGS (3)
  1. MORPHINE [Concomitant]
     Active Substance: MORPHINE
     Dosage: IN TOTAL
     Route: 058
     Dates: start: 20180907, end: 20180907
  2. FILGRASTIM [Suspect]
     Active Substance: FILGRASTIM
     Dosage: IN TOTAL
     Route: 058
     Dates: start: 20180907
  3. IBUPROFEN. [Concomitant]
     Active Substance: IBUPROFEN
     Dosage: IN TOTAL
     Route: 048
     Dates: start: 20180907, end: 20180907

REACTIONS (4)
  - Chest pain [Recovered/Resolved]
  - Tachycardia [Recovered/Resolved]
  - Hypotension [Recovered/Resolved]
  - Back pain [Recovered/Resolved]

NARRATIVE: CASE EVENT DATE: 20180907
